FAERS Safety Report 10260938 (Version 1)
Quarter: 2014Q2

REPORT INFORMATION
  Report Type: Spontaneous
  Country: US (occurrence: US)
  Receive Date: 20140626
  Receipt Date: 20140626
  Transmission Date: 20141212
  Serious: Yes (Hospitalization, Other)
  Sender: FDA-Public Use
  Company Number: 2014SP003478

PATIENT
  Age: 24 Year
  Sex: Female

DRUGS (40)
  1. METHOTREXATE [Suspect]
     Indication: PSORIASIS
     Dosage: UNK
     Route: 048
     Dates: start: 2005
  2. METHOTREXATE [Suspect]
     Indication: PSORIATIC ARTHROPATHY
     Dosage: UNK
     Route: 048
     Dates: start: 2005
  3. METHOTREXATE [Suspect]
     Indication: PSORIASIS
  4. METHOTREXATE [Suspect]
     Indication: PSORIATIC ARTHROPATHY
  5. PREDNISOLONE [Suspect]
     Indication: PSORIASIS
     Dosage: UNK
  6. PREDNISOLONE [Suspect]
     Indication: PSORIATIC ARTHROPATHY
     Dosage: UNK
  7. PREDNISOLONE [Suspect]
     Indication: PSORIASIS
  8. PREDNISOLONE [Suspect]
     Indication: PSORIATIC ARTHROPATHY
  9. ETANERCEPT [Suspect]
     Indication: PSORIASIS
     Dosage: 50 MG, 2 TIMES/WK
     Dates: start: 20040401, end: 201406
  10. ETANERCEPT [Suspect]
     Indication: PSORIATIC ARTHROPATHY
     Dosage: 50 MG, 2 TIMES/WK
     Dates: start: 20040401, end: 201406
  11. ETANERCEPT [Suspect]
     Indication: PSORIASIS
  12. ETANERCEPT [Suspect]
     Indication: PSORIATIC ARTHROPATHY
  13. ALEFACEPT [Suspect]
     Indication: PSORIASIS
     Dosage: UNK
     Dates: start: 2004, end: 2004
  14. ALEFACEPT [Suspect]
     Indication: PSORIATIC ARTHROPATHY
     Dosage: UNK
     Dates: start: 2004, end: 2004
  15. ALEFACEPT [Suspect]
     Indication: PSORIASIS
  16. ALEFACEPT [Suspect]
     Indication: PSORIATIC ARTHROPATHY
  17. EFALIZUMAB [Suspect]
     Indication: PSORIASIS
     Dosage: UNK
     Dates: start: 2006, end: 2006
  18. EFALIZUMAB [Suspect]
     Indication: PSORIATIC ARTHROPATHY
     Dosage: UNK
     Dates: start: 2006, end: 2006
  19. EFALIZUMAB [Suspect]
     Indication: PSORIASIS
  20. EFALIZUMAB [Suspect]
     Indication: PSORIATIC ARTHROPATHY
  21. CYCLOSPORINE [Suspect]
     Indication: PSORIASIS
     Dosage: UNK
     Dates: start: 2007, end: 2007
  22. CYCLOSPORINE [Suspect]
     Indication: PSORIATIC ARTHROPATHY
     Dosage: UNK
     Dates: start: 2007, end: 2007
  23. CYCLOSPORINE [Suspect]
     Indication: PSORIASIS
  24. CYCLOSPORINE [Suspect]
     Indication: PSORIATIC ARTHROPATHY
  25. ADALIMUMAB [Suspect]
     Indication: PSORIASIS
     Dosage: UNK
     Dates: start: 2007, end: 2007
  26. ADALIMUMAB [Suspect]
     Indication: PSORIATIC ARTHROPATHY
     Dosage: UNK
     Dates: start: 2007, end: 2007
  27. ADALIMUMAB [Suspect]
     Indication: PSORIASIS
  28. ADALIMUMAB [Suspect]
     Indication: PSORIATIC ARTHROPATHY
  29. INFLIXIMAB [Suspect]
     Indication: PSORIASIS
     Dosage: UNK
     Dates: start: 2007, end: 2008
  30. INFLIXIMAB [Suspect]
     Indication: PSORIATIC ARTHROPATHY
     Dosage: UNK
     Dates: start: 2007, end: 2008
  31. INFLIXIMAB [Suspect]
     Indication: PSORIASIS
  32. INFLIXIMAB [Suspect]
     Indication: PSORIATIC ARTHROPATHY
  33. USTEKINUMAB [Suspect]
     Indication: PSORIASIS
     Dosage: UNK
     Dates: start: 2011, end: 2013
  34. USTEKINUMAB [Suspect]
     Indication: PSORIATIC ARTHROPATHY
     Dosage: UNK
     Dates: start: 2011, end: 2013
  35. USTEKINUMAB [Suspect]
     Indication: PSORIASIS
  36. USTEKINUMAB [Suspect]
     Indication: PSORIATIC ARTHROPATHY
  37. DIPHENHYDRAMINE HYDROCHLORIDE [Suspect]
     Indication: PSORIASIS
     Dosage: UNK
     Dates: start: 2007
  38. DIPHENHYDRAMINE HYDROCHLORIDE [Suspect]
     Indication: PSORIATIC ARTHROPATHY
     Dosage: UNK
     Dates: start: 2007
  39. DIPHENHYDRAMINE HYDROCHLORIDE [Suspect]
     Indication: PSORIASIS
  40. DIPHENHYDRAMINE HYDROCHLORIDE [Suspect]
     Indication: PSORIATIC ARTHROPATHY

REACTIONS (13)
  - Psoriatic arthropathy [Recovered/Resolved]
  - Psoriasis [Not Recovered/Not Resolved]
  - Arthropathy [Recovered/Resolved]
  - Hepatic enzyme increased [Recovered/Resolved]
  - Blood pressure increased [Recovered/Resolved]
  - Heart rate increased [Recovered/Resolved]
  - Dyspnoea [Recovered/Resolved]
  - Migraine [Not Recovered/Not Resolved]
  - Vomiting [Not Recovered/Not Resolved]
  - Sinusitis [Not Recovered/Not Resolved]
  - Drug ineffective [Recovered/Resolved]
  - Drug hypersensitivity [Recovered/Resolved]
  - Choking sensation [Recovered/Resolved]
